FAERS Safety Report 10192251 (Version 1)
Quarter: 2014Q2

REPORT INFORMATION
  Report Type: Spontaneous
  Country: US (occurrence: US)
  Receive Date: 20140523
  Receipt Date: 20140523
  Transmission Date: 20141212
  Serious: No
  Sender: FDA-Public Use
  Company Number: US-GILEAD-2014-0102656

PATIENT
  Age: 34 Year
  Sex: Male

DRUGS (2)
  1. SOVALDI [Suspect]
     Indication: HEPATITIS C
     Dosage: UNK
     Route: 065
     Dates: start: 20140327
  2. RIBAVIRIN [Concomitant]

REACTIONS (3)
  - Paraesthesia [Unknown]
  - Pain in extremity [Unknown]
  - Haemoglobin decreased [Unknown]
